FAERS Safety Report 23165701 (Version 1)
Quarter: 2023Q4

REPORT INFORMATION
  Report Type: Spontaneous
  Country: US (occurrence: US)
  Receive Date: 20231109
  Receipt Date: 20231109
  Transmission Date: 20240109
  Serious: Yes (Other)
  Sender: FDA-Public Use
  Company Number: US-AMICUS THERAPEUTICS, INC.-AMI_2735

PATIENT
  Age: 49 Year
  Sex: Female

DRUGS (1)
  1. GALAFOLD [Suspect]
     Active Substance: MIGALASTAT HYDROCHLORIDE
     Indication: Fabry^s disease
     Dosage: UNK
     Route: 048

REACTIONS (7)
  - Syncope [Unknown]
  - Arrhythmia [Unknown]
  - Ventricular tachycardia [Unknown]
  - Disease progression [Unknown]
  - Myocardial fibrosis [Unknown]
  - Condition aggravated [Unknown]
  - Drug ineffective [Unknown]
